FAERS Safety Report 12829099 (Version 1)
Quarter: 2016Q4

REPORT INFORMATION
  Report Type: Spontaneous
  Country: US (occurrence: US)
  Receive Date: 20161007
  Receipt Date: 20161007
  Transmission Date: 20170207
  Serious: No
  Sender: FDA-Public Use
  Company Number: US-SA-2016SA046537

PATIENT
  Age: 53 Year
  Sex: Female

DRUGS (11)
  1. ASPIRIN ^BAYER^ [Concomitant]
     Active Substance: ASPIRIN
  2. IBUPROFEN. [Concomitant]
     Active Substance: IBUPROFEN
  3. BYSTOLIC [Concomitant]
     Active Substance: NEBIVOLOL HYDROCHLORIDE
  4. NEXIUM [Concomitant]
     Active Substance: ESOMEPRAZOLE MAGNESIUM
  5. PANTHENOL/RETINOL/THIAMINE HYDROCHLORIDE/ASCORBIC ACID/ERGOCALCIFEROL/FOLIC ACID/RIBOFLAVIN/NICOTINA [Concomitant]
  6. FIBER [Concomitant]
     Active Substance: PSYLLIUM HUSK
  7. CELEXA [Concomitant]
     Active Substance: CITALOPRAM HYDROBROMIDE
  8. LYRICA [Concomitant]
     Active Substance: PREGABALIN
  9. VITAMIN D3 [Concomitant]
     Active Substance: CHOLECALCIFEROL
  10. AUBAGIO [Suspect]
     Active Substance: TERIFLUNOMIDE
     Indication: MULTIPLE SCLEROSIS
     Route: 048
  11. EXTRACE [Concomitant]

REACTIONS (6)
  - Insomnia [Unknown]
  - Gait disturbance [Unknown]
  - Nightmare [Unknown]
  - Mobility decreased [Unknown]
  - Fatigue [Unknown]
  - Muscle spasms [Unknown]
